FAERS Safety Report 25085877 (Version 1)
Quarter: 2025Q1

REPORT INFORMATION
  Report Type: Spontaneous
  Country: US (occurrence: US)
  Receive Date: 20250317
  Receipt Date: 20250317
  Transmission Date: 20250408
  Serious: No
  Sender: CALLIDITAS THERAPEUTICS AB
  Company Number: US-Calliditas-2025CAL00392

PATIENT
  Age: 48 Year
  Sex: Female

DRUGS (14)
  1. TARPEYO [Suspect]
     Active Substance: BUDESONIDE
     Indication: IgA nephropathy
     Route: 048
     Dates: start: 20241221
  2. ALBUTEROL [Concomitant]
     Active Substance: ALBUTEROL
  3. CALCIUM CARBONATE [Concomitant]
     Active Substance: CALCIUM CARBONATE
  4. VITAMIN D3 [Concomitant]
     Active Substance: CHOLECALCIFEROL
  5. JARDIANCE [Concomitant]
     Active Substance: EMPAGLIFLOZIN
  6. ERYTHROPOIETIN [Concomitant]
     Active Substance: ERYTHROPOIETIN
  7. FLONASE [Concomitant]
     Active Substance: FLUTICASONE PROPIONATE
  8. FOLIC ACID [Concomitant]
     Active Substance: FOLIC ACID
  9. OLMESARTAN [Concomitant]
     Active Substance: OLMESARTAN
  10. OMEGA 3 [COLECALCIFEROL;DOCOSAHEXAENOIC ACID;EICOSAPENTAENOIC ACID;... [Concomitant]
  11. ZOCOR [Concomitant]
     Active Substance: SIMVASTATIN
  12. SODIUM BICARBONATE [Concomitant]
     Active Substance: SODIUM BICARBONATE
  13. ZINC [Concomitant]
     Active Substance: ZINC
  14. SODIUM GLUCONATE [Concomitant]
     Active Substance: SODIUM GLUCONATE

REACTIONS (4)
  - Blood pressure increased [Unknown]
  - Swelling face [Unknown]
  - Erythema [Unknown]
  - Swelling [Unknown]
